FAERS Safety Report 4513363-3 (Version None)
Quarter: 2004Q4

REPORT INFORMATION
  Report Type: 
  Country: None (occurrence: None)
  Receive Date: 20041130
  Receipt Date: 20040813
  Transmission Date: 20050328
  Serious: Yes (Other)
  Sender: FDA-Public Use
  Company Number: US-BRISTOL-MYERS SQUIBB COMPANY-12681094

PATIENT
  Sex: Female

DRUGS (1)
  1. ERBITUX [Suspect]
     Indication: COLON CANCER METASTATIC
     Dosage: LOADING DOSE.
     Route: 042
     Dates: start: 20040810, end: 20040810

REACTIONS (3)
  - DYSPNOEA [None]
  - HYPOACUSIS [None]
  - OBSTRUCTIVE AIRWAYS DISORDER [None]
